FAERS Safety Report 12163440 (Version 1)
Quarter: 2016Q1

REPORT INFORMATION
  Report Type: Spontaneous
  Country: US (occurrence: None)
  Receive Date: 20160308
  Receipt Date: 20160308
  Transmission Date: 20160526
  Serious: No
  Sender: FDA-Public Use
  Company Number: None

PATIENT
  Age: 75 Year
  Sex: Female
  Weight: 71.8 kg

DRUGS (7)
  1. LANTUS [Concomitant]
     Active Substance: INSULIN GLARGINE
  2. NORCO [Concomitant]
     Active Substance: ACETAMINOPHEN\HYDROCODONE BITARTRATE
  3. HYDRALAZINE [Concomitant]
     Active Substance: HYDRALAZINE HYDROCHLORIDE
  4. LUCENTIS [Suspect]
     Active Substance: RANIBIZUMAB
     Indication: DIABETIC RETINAL OEDEMA
     Dosage: .05CC , QMT, IVT OS?
     Dates: start: 20151109, end: 20160112
  5. GABAPENTIN. [Concomitant]
     Active Substance: GABAPENTIN
  6. CARVEDILOL. [Concomitant]
     Active Substance: CARVEDILOL
  7. CLODINE [Concomitant]

REACTIONS (7)
  - Nausea [None]
  - Stress cardiomyopathy [None]
  - Electrocardiogram abnormal [None]
  - Vomiting [None]
  - Dyspnoea [None]
  - Urinary tract infection [None]
  - Pulmonary oedema [None]

NARRATIVE: CASE EVENT DATE: 20160213
